FAERS Safety Report 8611793 (Version 2)
Quarter: 2013Q2

REPORT INFORMATION
  Report Type: Spontaneous
  Country: US (occurrence: US)
  Receive Date: 20120613
  Receipt Date: 20130522
  Transmission Date: 20140414
  Serious: No
  Sender: FDA-Public Use
  Company Number: US-ASTRAZENECA-2012SE00867

PATIENT
  Age: 67 Year
  Sex: Female

DRUGS (3)
  1. RHINOCORT AQUA [Suspect]
     Route: 045
  2. SYMBICORT PMDI [Suspect]
     Route: 055
  3. NEXIUM [Suspect]
     Route: 048

REACTIONS (2)
  - Asthma [Unknown]
  - Nasopharyngitis [Unknown]
